FAERS Safety Report 25479255 (Version 1)
Quarter: 2025Q2

REPORT INFORMATION
  Report Type: Spontaneous
  Country: US (occurrence: US)
  Receive Date: 20250625
  Receipt Date: 20250625
  Transmission Date: 20250717
  Serious: Yes (Hospitalization, Other)
  Sender: AMGEN
  Company Number: US-AMGEN-USASP2025121053

PATIENT
  Age: 18 Year
  Sex: Male
  Weight: 70.8 kg

DRUGS (1)
  1. BLINCYTO [Suspect]
     Active Substance: BLINATUMOMAB
     Indication: B precursor type acute leukaemia
     Dosage: 28 MICROGRAM, QD (28 MCG/24 HOUR BAG, PER DOSING SCHEDULE, DAY 1/CYCLE 1)
     Route: 042
     Dates: start: 20250613

REACTIONS (7)
  - Neurotoxicity [Recovered/Resolved]
  - Systemic candida [Recovering/Resolving]
  - Cytokine release syndrome [Recovering/Resolving]
  - Muscular weakness [Recovered/Resolved]
  - Mental status changes [Recovered/Resolved]
  - Aphasia [Recovered/Resolved]
  - Tremor [Recovered/Resolved]

NARRATIVE: CASE EVENT DATE: 20250614
